FAERS Safety Report 11306136 (Version 1)
Quarter: 2015Q3

REPORT INFORMATION
  Report Type: Spontaneous
  Country: CA (occurrence: CA)
  Receive Date: 20150723
  Receipt Date: 20150723
  Transmission Date: 20151125
  Serious: Yes (Other)
  Sender: FDA-Public Use
  Company Number: CA-FRESENIUS KABI-FK201503500

PATIENT
  Age: 53 Year
  Sex: Female

DRUGS (1)
  1. LEVOTHYROXINE SODIUM FOR INJECTION,200 MCG/6 ML VIAL + 500 MCG/6 ML VI [Suspect]
     Active Substance: LEVOTHYROXINE SODIUM
     Indication: PRODUCT USED FOR UNKNOWN INDICATION
     Route: 065

REACTIONS (1)
  - Angioedema [Unknown]
